FAERS Safety Report 25164436 (Version 3)
Quarter: 2025Q3

REPORT INFORMATION
  Report Type: Spontaneous
  Country: US (occurrence: US)
  Receive Date: 20250405
  Receipt Date: 20250923
  Transmission Date: 20251020
  Serious: No
  Sender: SANOFI AVENTIS
  Company Number: US-SA-2025SA096471

PATIENT
  Age: 63 Year
  Sex: Male
  Weight: 95.45 kg

DRUGS (6)
  1. DUPIXENT [Suspect]
     Active Substance: DUPILUMAB
     Indication: Dermatitis atopic
     Dosage: 300 MG, QOW
     Route: 058
     Dates: start: 2018
  2. TYVASO [Suspect]
     Active Substance: TREPROSTINIL
     Dosage: 12 U, QD; 12 BREATHES PER DAY
  3. TYVASO [Suspect]
     Active Substance: TREPROSTINIL
     Dosage: 12 U, QD;6 BREATHES PER DAY
  4. OFEV [Concomitant]
     Active Substance: NINTEDANIB
  5. LISINOPRIL [Concomitant]
     Active Substance: LISINOPRIL
  6. ZOLOFT [Concomitant]
     Active Substance: SERTRALINE HYDROCHLORIDE

REACTIONS (3)
  - Somnolence [Unknown]
  - Condition aggravated [Unknown]
  - Diarrhoea [Unknown]
